FAERS Safety Report 7628755-3 (Version None)
Quarter: 2011Q3

REPORT INFORMATION
  Report Type: 
  Country: None (occurrence: None)
  Receive Date: 20110722
  Receipt Date: 20110715
  Transmission Date: 20111222
  Serious: Yes (Other)
  Sender: FDA-Public Use
  Company Number: US-BAYER-2011-024054

PATIENT
  Age: 29 Year
  Sex: Female
  Weight: 105.67 kg

DRUGS (8)
  1. DROSPIRENONE AND ETHINYL ESTRADIOL [Suspect]
     Dosage: UNK
     Route: 048
     Dates: start: 20100101, end: 20100528
  2. TYLENOL-500 [Concomitant]
     Indication: PAIN
     Dosage: UNK UNK, PRN
  3. NAPROXEN (ALEVE) [Concomitant]
     Indication: PAIN
     Dosage: UNK UNK, PRN
  4. MOTRIN [Concomitant]
     Indication: PAIN
     Dosage: UNK UNK, PRN
  5. PERCOGESIC [Concomitant]
     Indication: PAIN
     Dosage: UNK UNK, PRN
  6. ZANTAC [Concomitant]
     Indication: GASTROOESOPHAGEAL REFLUX DISEASE
     Dosage: UNK UNK, PRN
  7. YAZ [Suspect]
     Dosage: UNK
     Route: 048
     Dates: start: 20080101, end: 20100101
  8. NEXIUM [Concomitant]
     Dosage: 40 MG, QD

REACTIONS (6)
  - BILIARY DYSKINESIA [None]
  - INJURY [None]
  - CHOLECYSTITIS CHRONIC [None]
  - PAIN [None]
  - GENERAL PHYSICAL HEALTH DETERIORATION [None]
  - GALLBLADDER DISORDER [None]
